FAERS Safety Report 15870128 (Version 1)
Quarter: 2019Q1

REPORT INFORMATION
  Report Type: Other
  Country: US (occurrence: US)
  Receive Date: 20190125
  Receipt Date: 20190125
  Transmission Date: 20190417
  Serious: No
  Sender: FDA-Public Use
  Company Number: US-ACORDA-ACO_146749_2018

PATIENT
  Age: 41 Year
  Sex: Male

DRUGS (2)
  1. AMPYRA [Suspect]
     Active Substance: DALFAMPRIDINE
     Indication: PRODUCT USED FOR UNKNOWN INDICATION
     Dosage: 10 MG, BID
     Route: 048
     Dates: start: 20180113
  2. BETASERON [Concomitant]
     Active Substance: INTERFERON BETA-1B
     Indication: PRODUCT USED FOR UNKNOWN INDICATION
     Dosage: UNK
     Route: 065

REACTIONS (18)
  - Memory impairment [Unknown]
  - Blood potassium abnormal [Unknown]
  - Renal disorder [Unknown]
  - Muscle spasms [Unknown]
  - Feeling cold [Unknown]
  - Disturbance in attention [Unknown]
  - Fatigue [Unknown]
  - Blood sodium decreased [Unknown]
  - Blood sodium abnormal [Unknown]
  - Loss of personal independence in daily activities [Unknown]
  - Thinking abnormal [Unknown]
  - Anaemia [Unknown]
  - Headache [Unknown]
  - Pruritus [Unknown]
  - Diplopia [Unknown]
  - Seasonal allergy [Unknown]
  - Therapeutic response unexpected [Unknown]
  - Tremor [Unknown]

NARRATIVE: CASE EVENT DATE: 20180410
